FAERS Safety Report 7636464-X (Version None)
Quarter: 2011Q3

REPORT INFORMATION
  Report Type: 
  Country: None (occurrence: None)
  Receive Date: 20110719
  Receipt Date: 20110708
  Transmission Date: 20111222
  Serious: Yes (Other)
  Sender: FDA-Public Use
  Company Number: 2011-2355

PATIENT

DRUGS (1)
  1. SOMATULINE DEPOT [Suspect]
     Indication: POLYCYSTIC LIVER DISEASE
     Dosage: 90 MG (90 MG, 1 IN 4 WK)

REACTIONS (1)
  - HYPERSENSITIVITY [None]
